FAERS Safety Report 8562499-9 (Version None)
Quarter: 2012Q3

REPORT INFORMATION
  Report Type: 
  Country: None (occurrence: None)
  Receive Date: 20120802
  Receipt Date: 20120703
  Transmission Date: 20120928
  Serious: No
  Sender: FDA-Public Use
  Company Number: US-AMGEN-USASP2012041264

PATIENT
  Age: 20 Year
  Sex: Female

DRUGS (1)
  1. ENBREL [Suspect]
     Indication: PSORIASIS
     Dosage: 50 MG, 2 TIMES/WK
     Dates: start: 20101101

REACTIONS (8)
  - PNEUMONIA [None]
  - COUGH [None]
  - SINUS CONGESTION [None]
  - LARYNGITIS [None]
  - PSORIASIS [None]
  - NASOPHARYNGITIS [None]
  - BRONCHITIS [None]
  - ANXIETY [None]
